FAERS Safety Report 15988376 (Version 1)
Quarter: 2019Q1

REPORT INFORMATION
  Report Type: Spontaneous
  Country: DK (occurrence: DK)
  Receive Date: 20190221
  Receipt Date: 20190221
  Transmission Date: 20190418
  Serious: Yes (Life-Threatening, Hospitalization)
  Sender: FDA-Public Use
  Company Number: DK-B.I. PHARMACEUTICALS,INC./RIDGEFIELD-2019-12-000581

PATIENT
  Age: 75 Year
  Sex: Male
  Weight: 82 kg

DRUGS (3)
  1. ABASAGLAR [Concomitant]
     Active Substance: INSULIN GLARGINE
     Indication: DIABETES MELLITUS
     Dosage: STRENGTH: 100 U/ML, SOLUTION FOR INJECTION IN PRE-FILLED PEN
     Route: 058
     Dates: start: 20181107
  2. JARDIANCE [Suspect]
     Active Substance: EMPAGLIFLOZIN
     Indication: DIABETES MELLITUS
     Dosage: STYRKE: 10 MG
     Route: 048
     Dates: start: 20180918
  3. METFORMIN [Concomitant]
     Active Substance: METFORMIN HYDROCHLORIDE
     Indication: DIABETES MELLITUS
     Dosage: STYRKE: 500 MG
     Route: 048
     Dates: start: 20150505

REACTIONS (4)
  - Debridement [Unknown]
  - Orchidectomy [Unknown]
  - Scrotal infection [Unknown]
  - Fournier^s gangrene [Recovered/Resolved with Sequelae]

NARRATIVE: CASE EVENT DATE: 201901
